FAERS Safety Report 9604919 (Version 3)
Quarter: 2014Q1

REPORT INFORMATION
  Report Type: Spontaneous
  Country: SE (occurrence: SE)
  Receive Date: 20131008
  Receipt Date: 20140304
  Transmission Date: 20141002
  Serious: Yes (Hospitalization, Other)
  Sender: FDA-Public Use
  Company Number: SE-ELI_LILLY_AND_COMPANY-SE201309010391

PATIENT
  Age: 21 Year
  Sex: Male

DRUGS (1)
  1. ZYPADHERA [Suspect]
     Indication: SCHIZOPHRENIA
     Dosage: 300 MG, 2/M (EVERY TWO WEEKS)
     Route: 030
     Dates: end: 20130724

REACTIONS (4)
  - Heart rate increased [Recovered/Resolved]
  - Dysstasia [Recovered/Resolved]
  - Fatigue [Recovered/Resolved]
  - Dysarthria [Recovered/Resolved]
